FAERS Safety Report 23030718 (Version 1)
Quarter: 2023Q4

REPORT INFORMATION
  Report Type: Spontaneous
  Country: EG (occurrence: EG)
  Receive Date: 20231005
  Receipt Date: 20231005
  Transmission Date: 20240110
  Serious: Yes (Life-Threatening, Other)
  Sender: FDA-Public Use
  Company Number: EG-HIKMA PHARMACEUTICALS-EG-H14001-23-65763

PATIENT

DRUGS (3)
  1. CARBOPLATIN [Suspect]
     Active Substance: CARBOPLATIN
     Indication: Ovarian cancer
     Dosage: 150 MILLIGRAM, EVERY 7 DAYS
     Route: 041
     Dates: start: 20230810
  2. PACLITAXEL [Suspect]
     Active Substance: PACLITAXEL
     Indication: Ovarian cancer
     Dosage: 100 MILLIGRAM, EVERY 7 DAYS
     Route: 041
     Dates: start: 20230810
  3. PACLITAXEL [Suspect]
     Active Substance: PACLITAXEL
     Dosage: 30 MILLIGRAM, EVERY 7 DAYS
     Route: 041
     Dates: start: 20230810

REACTIONS (7)
  - Tachycardia [Recovered/Resolved]
  - Tinnitus [Recovered/Resolved]
  - Dyspnoea [Recovered/Resolved]
  - Erythema [Recovered/Resolved]
  - Type I hypersensitivity [Recovered/Resolved]
  - Flushing [Recovered/Resolved]
  - Administration site extravasation [Recovered/Resolved]

NARRATIVE: CASE EVENT DATE: 20230914
